FAERS Safety Report 7233357-7 (Version None)
Quarter: 2011Q1

REPORT INFORMATION
  Report Type: 
  Country: None (occurrence: None)
  Receive Date: 20110119
  Receipt Date: 20110110
  Transmission Date: 20110831
  Serious: Yes (Other)
  Sender: FDA-Public Use
  Company Number: IT-ROCHE-752183

PATIENT

DRUGS (5)
  1. IRINOTECAN [Suspect]
     Dosage: DAY ONE OF EVERY 21 DAYS
     Route: 065
  2. FOLINIC ACID [Suspect]
     Dosage: ON DAY ONE
     Route: 065
  3. CAPECITABINE [Suspect]
     Dosage: DAY ONE TO FOURTEEN EVERY 21 DAYS
     Route: 065
  4. FLUOROURACIL [Suspect]
     Dosage: 48-HOUR INTRAVENOUS INFUSION, EVERY CYCLE.
     Route: 042
  5. FLUOROURACIL [Suspect]
     Dosage: INTRAVENOUS BOLUS ON DAY ONE OF EVERY CYCLE.
     Route: 042

REACTIONS (8)
  - CHOLINERGIC SYNDROME [None]
  - PLATELET COUNT DECREASED [None]
  - PALMAR-PLANTAR ERYTHRODYSAESTHESIA SYNDROME [None]
  - NEUTROPENIA [None]
  - ANAEMIA [None]
  - FATIGUE [None]
  - CEREBROVASCULAR ACCIDENT [None]
  - STOMATITIS [None]
